FAERS Safety Report 24992280 (Version 3)
Quarter: 2025Q2

REPORT INFORMATION
  Report Type: Spontaneous
  Country: JP (occurrence: JP)
  Receive Date: 20250220
  Receipt Date: 20250522
  Transmission Date: 20250716
  Serious: Yes (Other)
  Sender: SANOFI AVENTIS
  Company Number: JP-SA-2025SA048623

PATIENT
  Age: 47 Year
  Sex: Male

DRUGS (1)
  1. DUPIXENT [Suspect]
     Active Substance: DUPILUMAB
     Indication: Dermatitis atopic
     Route: 058
     Dates: start: 202310

REACTIONS (4)
  - Cutaneous T-cell lymphoma [Unknown]
  - Rash [Unknown]
  - Skin mass [Unknown]
  - Erythema [Unknown]

NARRATIVE: CASE EVENT DATE: 20240401
